FAERS Safety Report 11489008 (Version 1)
Quarter: 2015Q3

REPORT INFORMATION
  Report Type: Spontaneous
  Country: US (occurrence: US)
  Receive Date: 20150910
  Receipt Date: 20150910
  Transmission Date: 20151125
  Serious: No
  Sender: FDA-Public Use
  Company Number: US-ROCHE-1466325

PATIENT
  Sex: Female

DRUGS (3)
  1. PEGASYS [Suspect]
     Active Substance: PEGINTERFERON ALFA-2A
     Indication: HEPATITIS C
     Dosage: WEEKLY
     Route: 058
     Dates: start: 20130906, end: 20140214
  2. RIBAVIRIN. [Suspect]
     Active Substance: RIBAVIRIN
     Indication: HEPATITIS C
     Dosage: (RIBASPHERE-RIBAPAK)
     Route: 048
     Dates: start: 20130906, end: 20140214
  3. NEUPOGEN [Concomitant]
     Active Substance: FILGRASTIM
     Dosage: WEEKLY
     Route: 065
     Dates: start: 20140115, end: 20140226

REACTIONS (7)
  - Viral load increased [Unknown]
  - Aspartate aminotransferase increased [Unknown]
  - Hair growth abnormal [Unknown]
  - Hepatitis C RNA increased [Unknown]
  - Drug ineffective [Unknown]
  - Alpha 1 foetoprotein increased [Unknown]
  - Alanine aminotransferase increased [Unknown]
